FAERS Safety Report 23443077 (Version 1)
Quarter: 2024Q1

REPORT INFORMATION
  Report Type: Spontaneous
  Country: RU (occurrence: RU)
  Receive Date: 20240125
  Receipt Date: 20240125
  Transmission Date: 20240409
  Serious: Yes (Other)
  Sender: FDA-Public Use
  Company Number: RU-EPICPHARMA-RU-2024EPCLIT00114

PATIENT
  Age: 56 Year
  Sex: Female

DRUGS (6)
  1. LEUCOVORIN CALCIUM [Suspect]
     Active Substance: LEUCOVORIN CALCIUM
     Indication: Adenocarcinoma pancreas
     Route: 065
     Dates: start: 201805
  2. IRINOTECAN HYDROCHLORIDE [Suspect]
     Active Substance: IRINOTECAN HYDROCHLORIDE
     Indication: Adenocarcinoma pancreas
     Route: 065
     Dates: start: 201805
  3. FLUOROURACIL [Suspect]
     Active Substance: FLUOROURACIL
     Indication: Adenocarcinoma pancreas
     Route: 065
     Dates: start: 201805
  4. OXALIPLATIN [Suspect]
     Active Substance: OXALIPLATIN
     Indication: Adenocarcinoma pancreas
     Route: 065
     Dates: start: 201805
  5. GEMCITABINE [Concomitant]
     Active Substance: GEMCITABINE
     Route: 065
     Dates: start: 201812
  6. TALAZOPARIB [Concomitant]
     Active Substance: TALAZOPARIB
     Route: 065
     Dates: start: 201903

REACTIONS (3)
  - Neuropathy peripheral [Not Recovered/Not Resolved]
  - Febrile neutropenia [Unknown]
  - Product use in unapproved indication [Unknown]
